FAERS Safety Report 8482967-8 (Version None)
Quarter: 2012Q3

REPORT INFORMATION
  Report Type: 
  Country: None (occurrence: None)
  Receive Date: 20120702
  Receipt Date: 20120622
  Transmission Date: 20120928
  Serious: Yes (Other)
  Sender: FDA-Public Use
  Company Number: HK-JHP PHARMACEUTICALS, LLC-JHP201200341

PATIENT
  Sex: Female

DRUGS (1)
  1. KETALAR [Suspect]
     Indication: DRUG ABUSE

REACTIONS (4)
  - URETERIC STENOSIS [None]
  - URINARY TRACT DISORDER [None]
  - HYDRONEPHROSIS [None]
  - CONTRACTED BLADDER [None]
